FAERS Safety Report 9444014 (Version 1)
Quarter: 2013Q3

REPORT INFORMATION
  Report Type: Spontaneous
  Country: JP (occurrence: JP)
  Receive Date: 20130807
  Receipt Date: 20130807
  Transmission Date: 20140515
  Serious: Yes (Death, Hospitalization)
  Sender: FDA-Public Use
  Company Number: JP-009507513-1308JPN002166

PATIENT
  Sex: 0

DRUGS (1)
  1. STROMECTOL TABLETS 3 MG [Suspect]
     Indication: ACARODERMATITIS
     Dosage: UNK
     Route: 048
     Dates: start: 2012

REACTIONS (3)
  - Dysphagia [Fatal]
  - Asthenia [Fatal]
  - Pneumonia aspiration [Unknown]
